FAERS Safety Report 8598994-6 (Version None)
Quarter: 2012Q3

REPORT INFORMATION
  Report Type: 
  Country: None (occurrence: None)
  Receive Date: 20120816
  Receipt Date: 20120814
  Transmission Date: 20120928
  Serious: Yes (Hospitalization)
  Sender: FDA-Public Use
  Company Number: IT-ROCHE-1101576

PATIENT
  Sex: Male

DRUGS (7)
  1. ANAFRANIL [Suspect]
     Indication: DRUG ABUSE
     Route: 048
     Dates: start: 20120713, end: 20120713
  2. VALPROATE SODIUM [Suspect]
     Indication: DRUG ABUSE
     Route: 048
     Dates: start: 20120713, end: 20120713
  3. HALDOL [Suspect]
     Indication: DRUG ABUSE
     Route: 048
     Dates: start: 20120713, end: 20120713
  4. OLANZAPINE [Suspect]
     Indication: DRUG ABUSE
     Route: 048
     Dates: start: 20120713, end: 20120713
  5. LANTANON [Suspect]
     Indication: DRUG ABUSE
     Route: 048
     Dates: start: 20120713, end: 20120713
  6. CLONAZEPAM [Suspect]
     Indication: DRUG ABUSE
     Route: 048
     Dates: start: 20120713, end: 20120713
  7. TRAZODONE HCL [Suspect]
     Indication: DRUG ABUSE
     Route: 048
     Dates: start: 20120713, end: 20120713

REACTIONS (2)
  - SOPOR [None]
  - DRUG ABUSE [None]
